FAERS Safety Report 10860961 (Version 1)
Quarter: 2015Q1

REPORT INFORMATION
  Report Type: Spontaneous
  Country: US (occurrence: US)
  Receive Date: 20150224
  Receipt Date: 20150224
  Transmission Date: 20150721
  Serious: Yes (Hospitalization, Other)
  Sender: FDA-Public Use
  Company Number: US-JNJFOC-20150208947

PATIENT
  Age: 34 Year
  Sex: Male

DRUGS (1)
  1. IBUPROFEN. [Suspect]
     Active Substance: IBUPROFEN
     Indication: BACK PAIN
     Route: 065

REACTIONS (4)
  - Tachycardia [Unknown]
  - Hypotension [Unknown]
  - Duodenal ulcer [Unknown]
  - Upper gastrointestinal haemorrhage [Unknown]
